FAERS Safety Report 8074860-X (Version None)
Quarter: 2012Q1

REPORT INFORMATION
  Report Type: 
  Country: None (occurrence: None)
  Receive Date: 20120126
  Receipt Date: 20120119
  Transmission Date: 20120608
  Serious: Yes (Hospitalization)
  Sender: FDA-Public Use
  Company Number: US-ASTRAZENECA-2012SE04033

PATIENT
  Age: 69 Year
  Sex: Male
  Weight: 81.6 kg

DRUGS (9)
  1. FLUMIST [Concomitant]
  2. LISINOPRIL [Concomitant]
     Indication: BLOOD PRESSURE
  3. THEOPHYLLINE [Concomitant]
     Indication: DYSPNOEA
  4. ATROVENT [Concomitant]
  5. ASPIRIN [Concomitant]
     Indication: CARDIOVASCULAR EVENT PROPHYLAXIS
  6. SINGULAIR [Concomitant]
     Indication: SINUSITIS
  7. SYMBICORT [Suspect]
     Indication: BRONCHITIS
     Dosage: 2 PUFFS TWO TIMES A DAY
     Route: 055
  8. SINGULAIR [Concomitant]
     Indication: DYSPNOEA
  9. SYMBICORT [Suspect]
     Indication: CHRONIC OBSTRUCTIVE PULMONARY DISEASE
     Dosage: 2 PUFFS TWO TIMES A DAY
     Route: 055

REACTIONS (4)
  - BLOOD PRESSURE INCREASED [None]
  - HERPES ZOSTER [None]
  - JOINT DISLOCATION [None]
  - LOSS OF CONSCIOUSNESS [None]
